FAERS Safety Report 7053395-7 (Version None)
Quarter: 2010Q4

REPORT INFORMATION
  Report Type: 
  Country: None (occurrence: None)
  Receive Date: 20101020
  Receipt Date: 20101011
  Transmission Date: 20110411
  Serious: Yes (Hospitalization)
  Sender: FDA-Public Use
  Company Number: ES-SANOFI-AVENTIS-2010SA062402

PATIENT
  Age: 79 Year
  Sex: Male

DRUGS (7)
  1. DOCETAXEL [Suspect]
     Indication: PROSTATE CANCER
     Route: 041
     Dates: start: 20100902, end: 20100902
  2. BLINDED THERAPY [Suspect]
     Indication: PROSTATE CANCER
     Route: 048
     Dates: start: 20100902, end: 20100912
  3. PREDNISONE [Suspect]
     Indication: PROSTATE CANCER
     Route: 048
     Dates: start: 20100902
  4. LOBIVON [Concomitant]
     Dates: start: 20000101
  5. PLAVIX [Concomitant]
     Dates: start: 20000101
  6. TRIPTORELIN [Concomitant]
     Dates: start: 20080101
  7. ATORVASTATIN [Concomitant]

REACTIONS (3)
  - PYODERMA GANGRENOSUM [None]
  - RENAL FAILURE [None]
  - URINARY RETENTION [None]
